FAERS Safety Report 9386994 (Version 1)
Quarter: 2013Q3

REPORT INFORMATION
  Report Type: Spontaneous
  Country: US (occurrence: None)
  Receive Date: 20130703
  Receipt Date: 20130703
  Transmission Date: 20140515
  Serious: Yes (Other)
  Sender: FDA-Public Use
  Company Number: None

PATIENT
  Sex: Female
  Weight: 92.99 kg

DRUGS (10)
  1. FENTANYL TRANSDERMAL SYSTEM [Suspect]
     Indication: POST HERPETIC NEURALGIA
     Dosage: 1 PATCH 72 HOURS
     Route: 062
     Dates: start: 20130610, end: 20130611
  2. FENTANYL [Concomitant]
  3. SINTHRYOID [Concomitant]
  4. XEROLLTO [Concomitant]
  5. ATENINOL [Concomitant]
  6. CARBADOPA LOVADOPA [Concomitant]
  7. GABAPENTIN [Concomitant]
  8. OXYCODONE [Concomitant]
  9. VITAMIN B12 [Concomitant]
  10. VITAMIN D [Concomitant]

REACTIONS (4)
  - Drug effect decreased [None]
  - Product quality issue [None]
  - Product substitution issue [None]
  - Breakthrough pain [None]
